FAERS Safety Report 6680898-7 (Version None)
Quarter: 2010Q2

REPORT INFORMATION
  Report Type: 
  Country: None (occurrence: None)
  Receive Date: 20100412
  Receipt Date: 20100401
  Transmission Date: 20101027
  Serious: Yes (Hospitalization)
  Sender: FDA-Public Use
  Company Number: 97773

PATIENT
  Age: 54 Year
  Sex: Female

DRUGS (1)
  1. CYCLOSPORINE [Suspect]
     Indication: IMMUNOSUPPRESSANT DRUG THERAPY
     Dosage: 25MG PO BID; 1500MG
     Route: 048

REACTIONS (12)
  - ABDOMINAL PAIN [None]
  - ACCIDENTAL OVERDOSE [None]
  - ANURIA [None]
  - ASTHENIA [None]
  - BLOOD CREATININE INCREASED [None]
  - DEEP VEIN THROMBOSIS [None]
  - DRUG TOXICITY [None]
  - HYPERTENSION [None]
  - MEDICATION ERROR [None]
  - NAUSEA [None]
  - TREMOR [None]
  - VOMITING [None]
